FAERS Safety Report 18344591 (Version 1)
Quarter: 2020Q4

REPORT INFORMATION
  Report Type: Spontaneous
  Country: JP (occurrence: JP)
  Receive Date: 20201005
  Receipt Date: 20201005
  Transmission Date: 20210114
  Serious: Yes (Hospitalization)
  Sender: FDA-Public Use
  Company Number: JP-AMNEAL PHARMACEUTICALS-2020-AMRX-03010

PATIENT
  Age: 55 Year
  Sex: Male

DRUGS (1)
  1. MINOCYCLINE HYDROCHLORIDE. [Suspect]
     Active Substance: MINOCYCLINE HYDROCHLORIDE
     Indication: PNEUMONIA MYCOPLASMAL
     Dosage: 100 MILLIGRAM, EVERY 12HR (FOR MORE THAN OR EQUAL TO 60 MIN)
     Route: 042

REACTIONS (4)
  - Splenic infarction [Recovering/Resolving]
  - Venous thrombosis limb [Recovering/Resolving]
  - Vascular pain [Recovered/Resolved]
  - Pulmonary embolism [Recovering/Resolving]
